FAERS Safety Report 8617931-9 (Version None)
Quarter: 2012Q3

REPORT INFORMATION
  Report Type: 
  Country: None (occurrence: None)
  Receive Date: 20120824
  Receipt Date: 20120327
  Transmission Date: 20120928
  Serious: No
  Sender: FDA-Public Use
  Company Number: US-ASTRAZENECA-2012SE20277

PATIENT
  Age: 67 Year
  Sex: Female
  Weight: 136.1 kg

DRUGS (12)
  1. CELEXA [Concomitant]
     Indication: ANTIDEPRESSANT THERAPY
  2. SYMBICORT [Suspect]
     Indication: CHRONIC OBSTRUCTIVE PULMONARY DISEASE
     Dosage: 160/4.5 MCG, 2 PUFFS TWO TIMES A DAY
     Route: 055
     Dates: start: 20120228
  3. MOBIC [Concomitant]
     Indication: ANTIINFLAMMATORY THERAPY
     Dosage: EVERY DAY
  4. PRILOSEC OTC [Suspect]
     Indication: GASTROOESOPHAGEAL REFLUX DISEASE
     Route: 048
  5. CALCIUM [Concomitant]
  6. POTASSIUM CHLORIDE [Concomitant]
  7. BUMEX [Concomitant]
     Indication: DIURETIC THERAPY
  8. BLOOD PRESSURE MEDICATIONS [Concomitant]
  9. HEART RATE PILLS [Concomitant]
  10. ARTHRITIS MEDICATIONS [Concomitant]
  11. BLOOD PRESSURE MEDICATIONS [Concomitant]
     Dosage: 25 MG EVERY MORNING
  12. LORCET-HD [Concomitant]
     Indication: PAIN
     Dosage: 10 MG EVERY FOUR HOURS AS NEEDED

REACTIONS (3)
  - DYSPNOEA [None]
  - MEMORY IMPAIRMENT [None]
  - INTENTIONAL DRUG MISUSE [None]
